FAERS Safety Report 15540133 (Version 1)
Quarter: 2018Q4

REPORT INFORMATION
  Report Type: Spontaneous
  Country: US (occurrence: US)
  Receive Date: 20181023
  Receipt Date: 20181023
  Transmission Date: 20190205
  Serious: No
  Sender: FDA-Public Use
  Company Number: US-ASTRAZENECA-2018SF24158

PATIENT
  Sex: Female

DRUGS (1)
  1. BRILINTA [Suspect]
     Active Substance: TICAGRELOR
     Route: 048
     Dates: start: 201809

REACTIONS (4)
  - Dyspnoea [Unknown]
  - Haemorrhagic diathesis [Unknown]
  - Intentional product misuse [Unknown]
  - Animal scratch [Unknown]
